FAERS Safety Report 13657444 (Version 1)
Quarter: 2017Q2

REPORT INFORMATION
  Report Type: Spontaneous
  Country: US (occurrence: US)
  Receive Date: 20170615
  Receipt Date: 20170615
  Transmission Date: 20170830
  Serious: No
  Sender: FDA-Public Use
  Company Number: US-LEXICON PHARMACEUTICALS, INC-17-1606-00314

PATIENT
  Age: 59 Year
  Sex: Female

DRUGS (10)
  1. SYNTHROID [Concomitant]
     Active Substance: LEVOTHYROXINE SODIUM
  2. SANDOSTATIN [Concomitant]
     Active Substance: OCTREOTIDE ACETATE
  3. FERROUS SULFATE. [Concomitant]
     Active Substance: FERROUS SULFATE
  4. ALPRAZOLAM. [Concomitant]
     Active Substance: ALPRAZOLAM
  5. SOMATULINE [Concomitant]
     Active Substance: LANREOTIDE ACETATE
  6. LOSARTAN. [Concomitant]
     Active Substance: LOSARTAN
  7. AMLODIPINE [Concomitant]
     Active Substance: AMLODIPINE BESYLATE
  8. POTASSIUM CHLORIDE ER [Concomitant]
     Active Substance: POTASSIUM CHLORIDE
  9. TELOTRISTAT ETHYL [Suspect]
     Active Substance: TELOTRISTAT ETHYL
     Indication: CARCINOID SYNDROME
     Route: 048
     Dates: start: 201703
  10. PAROXETINE. [Concomitant]
     Active Substance: PAROXETINE

REACTIONS (2)
  - Defaecation urgency [Not Recovered/Not Resolved]
  - Abnormal faeces [Not Recovered/Not Resolved]

NARRATIVE: CASE EVENT DATE: 201705
